FAERS Safety Report 17824906 (Version 3)
Quarter: 2020Q2

REPORT INFORMATION
  Report Type: Spontaneous
  Country: US (occurrence: US)
  Receive Date: 20200526
  Receipt Date: 20200605
  Transmission Date: 20200714
  Serious: No
  Sender: FDA-Public Use
  Company Number: US-PFIZER INC-2020173458

PATIENT
  Age: 66 Year
  Sex: Male

DRUGS (1)
  1. PREGABALIN. [Suspect]
     Active Substance: PREGABALIN
     Indication: MYALGIA
     Dosage: 200 MG, 3X/DAY
     Route: 048

REACTIONS (4)
  - Pain [Unknown]
  - Product use in unapproved indication [Unknown]
  - Off label use [Unknown]
  - Drug ineffective for unapproved indication [Unknown]
